FAERS Safety Report 9019952 (Version 1)
Quarter: 2013Q1

REPORT INFORMATION
  Report Type: Spontaneous
  Country: US (occurrence: US)
  Receive Date: 20130119
  Receipt Date: 20130119
  Transmission Date: 20140127
  Serious: No
  Sender: FDA-Public Use
  Company Number: US-ALLERGAN-1212049US

PATIENT
  Age: 50 Year
  Sex: Female

DRUGS (2)
  1. BOTOX? [Suspect]
     Indication: TORTICOLLIS
     Dosage: UNK UNK, SINGLE
     Route: 030
     Dates: start: 20120827, end: 20120827
  2. BOTOX? [Suspect]
     Dosage: UNK, SINGLE
     Route: 030

REACTIONS (4)
  - Dizziness [Unknown]
  - Fatigue [Unknown]
  - Dysphagia [Unknown]
  - Nausea [Unknown]
